FAERS Safety Report 8981389 (Version 1)
Quarter: 2012Q4

REPORT INFORMATION
  Report Type: 
  Country: US (occurrence: US)
  Receive Date: 20121221
  Receipt Date: 20121221
  Transmission Date: 20130627
  Serious: No
  Sender: FDA-Public Use
  Company Number: US-PFIZER INC-2012323521

PATIENT

DRUGS (5)
  1. CHANTIX [Suspect]
     Indication: SMOKING CESSATION THERAPY
     Dosage: UNK
  2. PROZAC [Concomitant]
     Indication: DEPRESSION
     Dosage: 60 mg, UNK
  3. XANAX [Concomitant]
     Indication: ANXIETY
     Dosage: 0.5 q.i.d.
  4. XANAX [Concomitant]
     Dosage: 0.5 mg, 2x/day
  5. RESTORIL [Concomitant]
     Indication: INSOMNIA
     Dosage: 30 mg, UNK

REACTIONS (4)
  - Flatulence [Unknown]
  - Insomnia [Unknown]
  - Feeling of relaxation [Unknown]
  - Therapeutic response unexpected [Unknown]
